FAERS Safety Report 5225782-0 (Version None)
Quarter: 2007Q1

REPORT INFORMATION
  Report Type: 
  Country: None (occurrence: None)
  Receive Date: 20070201
  Receipt Date: 20070123
  Transmission Date: 20070707
  Serious: Yes (Hospitalization, Other)
  Sender: FDA-Public Use
  Company Number: GB-JNJFOC-20070106224

PATIENT
  Sex: Female
  Weight: 90 kg

DRUGS (12)
  1. REMICADE [Suspect]
     Indication: RHEUMATOID ARTHRITIS
     Route: 042
  2. RAMIPRIL [Concomitant]
     Route: 065
  3. INHALERS NOS [Concomitant]
     Route: 065
  4. PREDNISOLONE [Concomitant]
     Route: 065
  5. CALCICHEW [Concomitant]
     Route: 065
  6. FRUSEMIDE [Concomitant]
     Route: 065
  7. ACETAMINOPHEN [Concomitant]
     Route: 065
  8. PRAVASTATIN [Concomitant]
     Route: 065
  9. RANITIDINE [Concomitant]
     Route: 065
  10. RISEDRONATE SODIUM [Concomitant]
     Route: 065
  11. TRAMADOL HCL [Concomitant]
     Route: 065
  12. VISCOTEARS [Concomitant]
     Route: 065

REACTIONS (3)
  - ANGIOPLASTY [None]
  - CHEST PAIN [None]
  - CORONARY ARTERIAL STENT INSERTION [None]
